FAERS Safety Report 9433319 (Version 1)
Quarter: 2013Q3

REPORT INFORMATION
  Report Type: Report from Study
  Country: CA (occurrence: CA)
  Receive Date: 20130731
  Receipt Date: 20130731
  Transmission Date: 20140515
  Serious: Yes (Other)
  Sender: FDA-Public Use
  Company Number: CA-JNJFOC-20130711710

PATIENT
  Sex: Female
  Weight: 59.88 kg

DRUGS (8)
  1. REMICADE [Suspect]
     Indication: RHEUMATOID ARTHRITIS
     Route: 042
     Dates: start: 20130211
  2. IMURAN [Suspect]
     Indication: PRODUCT USED FOR UNKNOWN INDICATION
     Route: 065
     Dates: start: 20130211
  3. FENTANYL [Suspect]
     Indication: PAIN
     Route: 062
  4. METHOTREXATE [Suspect]
     Indication: PRODUCT USED FOR UNKNOWN INDICATION
     Route: 065
  5. MS CONTIN [Suspect]
     Indication: PAIN
     Route: 065
  6. HYDROMORPHONE [Suspect]
     Indication: BREAKTHROUGH PAIN
     Route: 065
  7. UNSPECIFIED NARCOTICS [Suspect]
     Indication: PAIN
     Route: 065
  8. LOVENOX [Concomitant]
     Indication: FACTOR V LEIDEN MUTATION
     Route: 065

REACTIONS (10)
  - Loss of consciousness [Unknown]
  - Fungal infection [Unknown]
  - Chest pain [Unknown]
  - Muscular weakness [Unknown]
  - Migraine [Unknown]
  - Gastritis [Recovering/Resolving]
  - Hypersomnia [Unknown]
  - Drug ineffective [Unknown]
  - Dizziness [Unknown]
  - Constipation [Unknown]
